FAERS Safety Report 8964158 (Version 1)
Quarter: 2012Q4

REPORT INFORMATION
  Report Type: 
  Country: US (occurrence: US)
  Receive Date: 20121213
  Receipt Date: 20121213
  Transmission Date: 20130627
  Serious: Yes (Other)
  Sender: FDA-Public Use
  Company Number: US-BAXTER-2012BAX027133

PATIENT

DRUGS (1)
  1. FORANE [Suspect]
     Indication: BRONCHOSPASM

REACTIONS (1)
  - Pneumothorax [Recovered/Resolved]
